FAERS Safety Report 5442788-7 (Version None)
Quarter: 2007Q3

REPORT INFORMATION
  Report Type: 
  Country: None (occurrence: None)
  Receive Date: 20070904
  Receipt Date: 20070828
  Transmission Date: 20080115
  Serious: Yes (Life-Threatening, Other)
  Sender: FDA-Public Use
  Company Number: FR-BOEHRINGER INGELHEIM PHARMACEUTICALS, INC.-2007-FF-00871FF

PATIENT
  Age: 45 Year
  Sex: Female

DRUGS (4)
  1. SPIRIVA [Suspect]
     Indication: CHRONIC OBSTRUCTIVE PULMONARY DISEASE
     Route: 055
  2. FORADIL [Concomitant]
  3. HYDROCORTISONE [Concomitant]
  4. ANTIHISTAMINIC [Concomitant]

REACTIONS (2)
  - ANGIOEDEMA [None]
  - MOUTH ULCERATION [None]
